FAERS Safety Report 9378017 (Version 1)
Quarter: 2013Q3

REPORT INFORMATION
  Report Type: Spontaneous
  Country: US (occurrence: US)
  Receive Date: 20130701
  Receipt Date: 20130701
  Transmission Date: 20140515
  Serious: Yes (Other)
  Sender: FDA-Public Use
  Company Number: CHPA2013US010532

PATIENT
  Age: 82 Year
  Sex: Female

DRUGS (7)
  1. GAS-X UNKNOWN [Suspect]
     Indication: ABDOMINAL DISCOMFORT
     Dosage: UNK, UNK
     Route: 048
     Dates: start: 2002
  2. ANTIBIOTICS [Concomitant]
     Indication: ORAL SURGERY
     Dosage: UNK, UNK
     Dates: start: 201306
  3. ASPIRIN [Concomitant]
     Indication: MYOCARDIAL INFARCTION
     Dosage: UNK, UNK
     Dates: start: 2000
  4. METOPROLOL [Concomitant]
     Indication: MYOCARDIAL INFARCTION
     Dosage: UNK, UNK
     Dates: start: 2000
  5. LEVOTHYROXIN [Concomitant]
     Indication: THYROID DISORDER
     Dosage: UNK, UNK
  6. PRILOSEC [Concomitant]
     Indication: GASTROOESOPHAGEAL REFLUX DISEASE
     Dosage: UNK, UNK
  7. PROBIOTICS [Concomitant]
     Indication: GASTROINTESTINAL DISORDER
     Dosage: UNK, UNK

REACTIONS (2)
  - Osteoarthritis [Not Recovered/Not Resolved]
  - Off label use [Unknown]
